FAERS Safety Report 10021451 (Version 1)
Quarter: 2014Q1

REPORT INFORMATION
  Report Type: Report from Study
  Country: US (occurrence: US)
  Receive Date: 20140319
  Receipt Date: 20140319
  Transmission Date: 20141002
  Serious: Yes (Hospitalization, Other)
  Sender: FDA-Public Use
  Company Number: US-ALEXION PHARMACEUTICALS INC.-A201202921

PATIENT
  Sex: Female

DRUGS (1)
  1. SOLIRIS [Suspect]
     Indication: PAROXYSMAL NOCTURNAL HAEMOGLOBINURIA
     Dosage: UNK
     Route: 042

REACTIONS (8)
  - Renal failure acute [Recovering/Resolving]
  - Aplastic anaemia [Unknown]
  - Dyspnoea [Unknown]
  - Haemoglobinuria [Unknown]
  - Pallor [Unknown]
  - Gastrointestinal pain [Unknown]
  - Fatigue [Unknown]
  - Abdominal pain [Unknown]
